FAERS Safety Report 8554128-5 (Version None)
Quarter: 2012Q3

REPORT INFORMATION
  Report Type: 
  Country: None (occurrence: None)
  Receive Date: 20120731
  Receipt Date: 20120725
  Transmission Date: 20120928
  Serious: Yes (Hospitalization, Other)
  Sender: FDA-Public Use
  Company Number: PHHY2012BR005596

PATIENT
  Age: 88 Year
  Sex: Female
  Weight: 43.7 kg

DRUGS (12)
  1. EXELON [Suspect]
     Dosage: 13.3 MG/24 HOURS (27MG/15CM2)
     Route: 062
     Dates: start: 20120525
  2. PRESSOTEC [Concomitant]
     Indication: BLOOD PRESSURE
     Dosage: 1 DF, UNK
     Route: 048
  3. EXELON [Suspect]
     Indication: DEMENTIA ALZHEIMER'S TYPE
     Dosage: 4.6 MG/24 HOURS (9MG/5CM2)
     Route: 062
     Dates: start: 20110801
  4. GLIMEPIRIDE [Concomitant]
     Indication: DIABETES MELLITUS
     Dosage: 2 DF, UNK
  5. METFORMIN HYDROCHLORIDE [Concomitant]
     Indication: DIABETES MELLITUS
     Dosage: 1 DF, UNK
     Route: 048
  6. MEMANTINE HYDROCHLORIDE [Concomitant]
     Indication: DEMENTIA ALZHEIMER'S TYPE
     Dosage: 10 MG, ONCE OR TWICE A DAY
     Dates: start: 20110501
  7. AAS INFANTIL [Concomitant]
     Dosage: 1 DF, UNK
     Route: 048
  8. EXELON [Suspect]
     Dosage: 13.3 MG/24 HOURS (27MG/15CM2)
     Route: 062
  9. EXELON [Suspect]
     Dosage: 9.5 MG/24 HOURS (18MG/10CM2 )
     Route: 062
  10. PRESSAT [Concomitant]
     Indication: BLOOD PRESSURE
     Dosage: 1 DF, UNK
     Route: 048
  11. METFORMIN HYDROCHLORIDE [Concomitant]
     Indication: DIABETES MELLITUS
     Dosage: 1 DF, UNK
  12. ATENOLOL [Concomitant]
     Indication: BLOOD PRESSURE
     Dosage: 1 DF, IN MORNING
     Route: 048

REACTIONS (18)
  - AGITATION [None]
  - NERVOUSNESS [None]
  - SUICIDAL IDEATION [None]
  - APPLICATION SITE IRRITATION [None]
  - WEIGHT DECREASED [None]
  - ANXIETY [None]
  - SCAB [None]
  - IRRITABILITY [None]
  - RESTLESSNESS [None]
  - GENERAL PHYSICAL HEALTH DETERIORATION [None]
  - APPLICATION SITE BLEEDING [None]
  - BLOOD PRESSURE DECREASED [None]
  - APPLICATION SITE ERYTHEMA [None]
  - GAIT DISTURBANCE [None]
  - GASTROENTERITIS [None]
  - APPLICATION SITE PRURITUS [None]
  - SOMNOLENCE [None]
  - WRONG TECHNIQUE IN DRUG USAGE PROCESS [None]
